FAERS Safety Report 20888455 (Version 1)
Quarter: 2022Q2

REPORT INFORMATION
  Report Type: Spontaneous
  Country: US (occurrence: None)
  Receive Date: 20220529
  Receipt Date: 20220529
  Transmission Date: 20220721
  Serious: Yes (Other)
  Sender: FDA-Public Use
  Company Number: US-ROCHE-3104006

PATIENT
  Age: 31 Year
  Sex: Female
  Weight: 104.42 kg

DRUGS (1)
  1. OCREVUS [Suspect]
     Active Substance: OCRELIZUMAB
     Indication: Relapsing-remitting multiple sclerosis
     Dosage: YES
     Route: 042

REACTIONS (4)
  - Abdominal pain [Recovered/Resolved]
  - Fall [Unknown]
  - Balance disorder [Unknown]
  - Relapsing multiple sclerosis [Unknown]

NARRATIVE: CASE EVENT DATE: 20220401
